FAERS Safety Report 4439344-6 (Version None)
Quarter: 2004Q3

REPORT INFORMATION
  Report Type: 
  Country: None (occurrence: None)
  Receive Date: 20040831
  Receipt Date: 20040825
  Transmission Date: 20050211
  Serious: Yes (Hospitalization)
  Sender: FDA-Public Use
  Company Number: STA-AE-04-025

PATIENT
  Age: 70 Year
  Sex: Male
  Weight: 86.1834 kg

DRUGS (3)
  1. KETOPROFEN ER [Suspect]
     Indication: PAIN
     Dosage: 200 MG QD, ORAL
     Route: 048
     Dates: start: 19980101, end: 19980101
  2. KETOPROFEN [Suspect]
     Dates: start: 20040719
  3. LORATADINE [Concomitant]

REACTIONS (4)
  - DIZZINESS [None]
  - FEELING ABNORMAL [None]
  - NAUSEA [None]
  - SYNCOPE [None]
